FAERS Safety Report 16722019 (Version 7)
Quarter: 2020Q1

REPORT INFORMATION
  Report Type: Spontaneous
  Country: FR (occurrence: FR)
  Receive Date: 20190820
  Receipt Date: 20200221
  Transmission Date: 20200409
  Serious: Yes (Death, Hospitalization, Other)
  Sender: FDA-Public Use
  Company Number: FR-BEH-2019105883

PATIENT
  Age: 65 Year
  Sex: Male
  Weight: 68 kg

DRUGS (5)
  1. FRESH FROZEN PLASMA [Concomitant]
     Active Substance: HUMAN PLASMA
     Indication: PLASMAPHERESIS
     Dosage: UNK
     Route: 065
     Dates: start: 20190807, end: 20190810
  2. ALBUNORM [Suspect]
     Active Substance: ALBUMIN HUMAN
     Indication: PLASMAPHERESIS
     Dosage: 75 GRAM, QD
     Route: 042
     Dates: start: 20190807, end: 20190810
  3. PRIVIGEN [Suspect]
     Active Substance: HUMAN IMMUNOGLOBULIN G
     Indication: LUNG TRANSPLANT REJECTION
     Dosage: 7 GRAM, QD
     Route: 042
     Dates: start: 20190807, end: 20190808
  4. PRIVIGEN [Suspect]
     Active Substance: HUMAN IMMUNOGLOBULIN G
     Dosage: 7 GRAM, QD
     Route: 042
     Dates: start: 20190809, end: 20190810
  5. PLASMION [Suspect]
     Active Substance: GELATIN
     Indication: PLASMAPHERESIS
     Dosage: 1500 MILLILITER, QD
     Route: 042
     Dates: start: 20190807, end: 20190810

REACTIONS (16)
  - Painful respiration [Unknown]
  - Bradycardia [Unknown]
  - Transfusion-related acute lung injury [Unknown]
  - No adverse event [Unknown]
  - Product use in unapproved indication [Unknown]
  - Hypoxia [Unknown]
  - Acute respiratory distress syndrome [Fatal]
  - Cardio-respiratory arrest [Fatal]
  - Renal failure [Unknown]
  - Haemodynamic instability [Unknown]
  - Shock [Unknown]
  - Oxygen saturation decreased [Unknown]
  - Respiratory distress [Unknown]
  - Coma [Unknown]
  - Hypotension [Unknown]
  - Metabolic acidosis [Unknown]

NARRATIVE: CASE EVENT DATE: 201908
